FAERS Safety Report 9366755 (Version 1)
Quarter: 2013Q2

REPORT INFORMATION
  Report Type: Spontaneous
  Country: DE (occurrence: None)
  Receive Date: 20130620
  Receipt Date: 20130620
  Transmission Date: 20140414
  Serious: Yes (Other)
  Sender: FDA-Public Use
  Company Number: VAL_02591_2013

PATIENT
  Age: 62 Year
  Sex: Female

DRUGS (3)
  1. METOPROLOL [Suspect]
     Indication: HYPERTENSION
  2. AMLODIPINE (AMLODIPINE) [Suspect]
     Indication: HYPERTENSION
  3. CANDESARTAN [Suspect]
     Indication: HYPERTENSION

REACTIONS (7)
  - Posterior reversible encephalopathy syndrome [None]
  - Grand mal convulsion [None]
  - Monoparesis [None]
  - Nausea [None]
  - Vomiting [None]
  - Blood pressure increased [None]
  - Cerebrovascular accident [None]
